FAERS Safety Report 16445160 (Version 1)
Quarter: 2019Q2

REPORT INFORMATION
  Report Type: Spontaneous
  Country: US (occurrence: US)
  Receive Date: 20190618
  Receipt Date: 20190618
  Transmission Date: 20190711
  Serious: Yes (Other)
  Sender: FDA-Public Use
  Company Number: US-VALIDUS PHARMACEUTICALS LLC-US-2019VAL000281

PATIENT

DRUGS (3)
  1. AUBAGIO [Suspect]
     Active Substance: TERIFLUNOMIDE
     Indication: MULTIPLE SCLEROSIS
     Dosage: 14 MG, QD
     Route: 065
     Dates: start: 20181125, end: 201901
  2. AUBAGIO [Suspect]
     Active Substance: TERIFLUNOMIDE
     Dosage: UNK
     Route: 065
     Dates: start: 201902
  3. LASIX [Suspect]
     Active Substance: FUROSEMIDE
     Indication: PRODUCT USED FOR UNKNOWN INDICATION
     Dosage: UNK
     Route: 065

REACTIONS (5)
  - Drug interaction [Recovered/Resolved]
  - Wound [Recovered/Resolved]
  - Pollakiuria [Recovered/Resolved]
  - Localised infection [Recovered/Resolved]
  - Product dose omission [Recovered/Resolved]

NARRATIVE: CASE EVENT DATE: 201811
